FAERS Safety Report 26049702 (Version 1)
Quarter: 2025Q4

REPORT INFORMATION
  Report Type: Report from Study
  Country: US (occurrence: US)
  Receive Date: 20251115
  Receipt Date: 20251115
  Transmission Date: 20260117
  Serious: Yes (Other)
  Sender: JOHNSON AND JOHNSON
  Company Number: US-JNJFOC-20251144202

PATIENT

DRUGS (2)
  1. REMICADE [Suspect]
     Active Substance: INFLIXIMAB
     Indication: Inflammatory bowel disease
     Route: 041
  2. ASPIRIN [Suspect]
     Active Substance: ASPIRIN

REACTIONS (4)
  - Immune-mediated adverse reaction [Unknown]
  - Crohn^s disease [Unknown]
  - Infection [Unknown]
  - Adverse drug reaction [Unknown]
